FAERS Safety Report 6701911-4 (Version None)
Quarter: 2010Q2

REPORT INFORMATION
  Report Type: 
  Country: None (occurrence: None)
  Receive Date: 20100429
  Receipt Date: 20100419
  Transmission Date: 20101027
  Serious: Yes (Hospitalization)
  Sender: FDA-Public Use
  Company Number: DK-PFIZER INC-2008151920

PATIENT
  Age: 28 Year
  Sex: Female

DRUGS (3)
  1. ZOLOFT [Suspect]
     Indication: DEPRESSION
     Dosage: UNK
     Route: 048
     Dates: start: 20030101, end: 20080701
  2. LAMICTAL [Concomitant]
     Dosage: UNK
     Dates: start: 20060801, end: 20081015
  3. SEROQUEL [Concomitant]
     Dosage: UNK
     Dates: start: 20071001, end: 20081001

REACTIONS (2)
  - MANIA [None]
  - PSYCHOTIC DISORDER [None]
